FAERS Safety Report 6334587-9 (Version None)
Quarter: 2009Q3

REPORT INFORMATION
  Report Type: 
  Country: None (occurrence: None)
  Receive Date: 20090831
  Receipt Date: 20090827
  Transmission Date: 20100115
  Serious: Yes (Death)
  Sender: FDA-Public Use
  Company Number: PHHY2009JP36353

PATIENT
  Sex: Male

DRUGS (6)
  1. DIOVAN [Suspect]
     Dosage: 1 DF (80 MG), QD
     Route: 048
     Dates: start: 20080406
  2. ITOROL [Concomitant]
     Dosage: 40 MG, UNK
     Route: 048
     Dates: start: 19960101
  3. HERBESSOR R [Concomitant]
     Dosage: 200 MG, UNK
     Route: 048
     Dates: start: 19960101
  4. BUFFERIN [Concomitant]
     Dosage: 81 MG, UNK
     Route: 048
     Dates: start: 19960101
  5. PANALDINE [Concomitant]
     Dosage: 200 MG, UNK
     Route: 048
     Dates: start: 19960101
  6. LIPITOR [Concomitant]
     Dosage: 10 MG, UNK
     Dates: start: 19960101

REACTIONS (1)
  - CEREBRAL INFARCTION [None]
